FAERS Safety Report 7305332-5 (Version None)
Quarter: 2011Q1

REPORT INFORMATION
  Report Type: 
  Country: None (occurrence: None)
  Receive Date: 20110222
  Receipt Date: 20110208
  Transmission Date: 20110831
  Serious: Yes (Other)
  Sender: FDA-Public Use
  Company Number: PHHY2010NZ75197

PATIENT
  Sex: Male

DRUGS (21)
  1. RISPERIDONE [Concomitant]
  2. ANTIDEPRESSANTS [Concomitant]
  3. NORMAL SALINE [Concomitant]
     Dosage: 0.9 % 400 ML STAT AND 600 ML SLOWLY
  4. LORAZEPAM [Concomitant]
  5. BENZTROPINE MESYLATE [Concomitant]
     Dosage: 2 MG, QD
  6. NICOTINE [Concomitant]
  7. LEVOTHYROXINE SODIUM [Concomitant]
  8. CLOZARIL [Suspect]
     Dosage: UNK
     Dates: start: 20101011
  9. PARACETAMOL [Concomitant]
  10. ANTIPSYCHOTICS [Concomitant]
  11. DOCUSATE [Concomitant]
  12. SENNOSIDES [Concomitant]
  13. PREDNISONE [Concomitant]
  14. DICLOFENAC [Concomitant]
  15. FRUSEMIDE [Concomitant]
  16. COMBIVENT                               /GFR/ [Concomitant]
  17. ANTIHYPERTENSIVES [Concomitant]
  18. AUGMENTIN '125' [Concomitant]
     Route: 042
  19. RULIDE [Concomitant]
     Dosage: 3000 MG, UNK
  20. ZOPICLONE [Concomitant]
  21. COMBIVENT                               /GFR/ [Concomitant]
     Dosage: 4 PUFFS QID

REACTIONS (38)
  - VENTRICULAR FAILURE [None]
  - EJECTION FRACTION DECREASED [None]
  - MYOCARDITIS [None]
  - LOBAR PNEUMONIA [None]
  - ORTHOPNOEA [None]
  - MALAISE [None]
  - CARDIAC FAILURE ACUTE [None]
  - OXYGEN SATURATION DECREASED [None]
  - TACHYPNOEA [None]
  - FATIGUE [None]
  - AGGRESSION [None]
  - ANGER [None]
  - DILATATION VENTRICULAR [None]
  - HYPOTENSION [None]
  - CHEST PAIN [None]
  - WHEEZING [None]
  - BLOOD CREATINE INCREASED [None]
  - OEDEMA [None]
  - SEDATION [None]
  - PERICARDITIS [None]
  - TROPONIN T INCREASED [None]
  - SINUS TACHYCARDIA [None]
  - COUGH [None]
  - ASTHENIA [None]
  - LETHARGY [None]
  - IRRITABILITY [None]
  - INSOMNIA [None]
  - DEPRESSED MOOD [None]
  - PERICARDIAL EFFUSION [None]
  - DYSPNOEA [None]
  - CARDIOMYOPATHY [None]
  - TACHYARRHYTHMIA [None]
  - HEART RATE ABNORMAL [None]
  - OEDEMA PERIPHERAL [None]
  - CARDIOMEGALY [None]
  - DIZZINESS [None]
  - EMOTIONAL DISTRESS [None]
  - PYREXIA [None]
